FAERS Safety Report 9366254 (Version 1)
Quarter: 2013Q2

REPORT INFORMATION
  Report Type: Spontaneous
  Country: US (occurrence: US)
  Receive Date: 20130625
  Receipt Date: 20130625
  Transmission Date: 20140414
  Serious: No
  Sender: FDA-Public Use
  Company Number: US-GLAXOSMITHKLINE-A0975578A

PATIENT
  Age: 83 Year
  Sex: Female

DRUGS (3)
  1. VERAMYST [Suspect]
     Indication: EAR PAIN
     Dosage: 2SPR TWICE PER DAY
     Route: 045
     Dates: start: 20120417, end: 20120423
  2. CARVEDILOL [Concomitant]
  3. TRIAMTEREN + HYDROCHLOROTHIAZIDE [Concomitant]

REACTIONS (3)
  - Ear pain [Unknown]
  - Drug ineffective [Unknown]
  - Product quality issue [Unknown]
